FAERS Safety Report 16907706 (Version 1)
Quarter: 2019Q4

REPORT INFORMATION
  Report Type: Spontaneous
  Country: GB (occurrence: GB)
  Receive Date: 20191011
  Receipt Date: 20191011
  Transmission Date: 20200122
  Serious: Yes (Other)
  Sender: FDA-Public Use
  Company Number: GB-SHILPA MEDICARE LIMITED-SML-GB-2019-00212

PATIENT

DRUGS (6)
  1. IMATINIB, UNKNOWN [Suspect]
     Active Substance: IMATINIB
     Dosage: UNK
     Route: 065
     Dates: start: 201611
  2. IMATINIB, UNKNOWN [Suspect]
     Active Substance: IMATINIB
     Dosage: 300 MG, UNK
     Route: 065
     Dates: start: 201703
  3. IMATINIB, UNKNOWN [Suspect]
     Active Substance: IMATINIB
     Indication: CHRONIC MYELOID LEUKAEMIA
     Dosage: 200 MG, QD
     Route: 065
  4. IMATINIB, UNKNOWN [Suspect]
     Active Substance: IMATINIB
     Dosage: 300 MG, UNK
     Route: 065
     Dates: start: 201703
  5. IMATINIB, UNKNOWN [Suspect]
     Active Substance: IMATINIB
     Indication: CHRONIC MYELOID LEUKAEMIA
     Dosage: 200 MG, QD
     Route: 065
  6. IMATINIB, UNKNOWN [Suspect]
     Active Substance: IMATINIB
     Dosage: UNK
     Route: 065
     Dates: start: 201611

REACTIONS (2)
  - Pancytopenia [Unknown]
  - Drug ineffective [Unknown]
